FAERS Safety Report 4404160-8 (Version None)
Quarter: 2004Q3

REPORT INFORMATION
  Report Type: 
  Country: None (occurrence: None)
  Receive Date: 20040721
  Receipt Date: 20040721
  Transmission Date: 20050211
  Serious: Yes (Other)
  Sender: FDA-Public Use
  Company Number: None

PATIENT
  Age: 50 Year
  Sex: Male
  Weight: 76.8 kg

DRUGS (16)
  1. AZITHROMYCIN [Suspect]
     Indication: PNEUMONIA
     Dosage: 250 MG ORAL
     Route: 048
     Dates: start: 20040118
  2. CLINDAMYCIN HCL [Suspect]
     Indication: PNEUMONIA
     Dosage: 900 MG ORAL
     Route: 048
     Dates: start: 20040118
  3. KAOLIN/PECTIN SUSP [Concomitant]
  4. OMEPRAZOLE [Concomitant]
  5. PROPRANOLOL HCL [Concomitant]
  6. MULTI-VITAMIN [Concomitant]
  7. RABEPRAZOLE SODIUM [Concomitant]
  8. POTASSIUM CHLORIDE [Concomitant]
  9. THIAMINE [Concomitant]
  10. FOLIC ACID [Concomitant]
  11. GUAIFENESIN SYRUP [Concomitant]
  12. LORAZEPAM [Concomitant]
  13. PROPRANOLOL [Concomitant]
  14. MAGNESIUM SULFATE [Concomitant]
  15. OCTREOTIDE ACETATE [Concomitant]
  16. PANTOPRAZOLE [Concomitant]

REACTIONS (1)
  - CLOSTRIDIAL INFECTION [None]
